FAERS Safety Report 4668480-4 (Version None)
Quarter: 2005Q2

REPORT INFORMATION
  Report Type: 
  Country: None (occurrence: None)
  Receive Date: 20050518
  Receipt Date: 20050425
  Transmission Date: 20051028
  Serious: Yes (Other)
  Sender: FDA-Public Use
  Company Number: B0376996A

PATIENT
  Sex: Male

DRUGS (11)
  1. PAXIL [Suspect]
     Dates: start: 19990101, end: 20040601
  2. PRAVASTATIN [Concomitant]
  3. PROPRANOLOL HYDROCHLORIDE [Concomitant]
  4. TEMAZEPAM [Concomitant]
  5. GAVISCON [Concomitant]
  6. LACTULOSE [Concomitant]
  7. LANSOPRAZOLE [Concomitant]
  8. CEFACLOR [Concomitant]
  9. HYOSCINE HBR HYT [Concomitant]
  10. ROSUVASTATIN CALCIUM [Concomitant]
  11. ASPIRIN [Concomitant]

REACTIONS (20)
  - AGGRESSION [None]
  - ASTHENIA [None]
  - BILE DUCT OBSTRUCTION [None]
  - BLUNTED AFFECT [None]
  - CHOLELITHIASIS [None]
  - COLONIC POLYP [None]
  - CONFUSIONAL STATE [None]
  - DIABETES MELLITUS INADEQUATE CONTROL [None]
  - DIARRHOEA [None]
  - DIVERTICULITIS [None]
  - DIVERTICULUM [None]
  - DRUG WITHDRAWAL SYNDROME [None]
  - FEELING ABNORMAL [None]
  - HIATUS HERNIA [None]
  - INFLUENZA [None]
  - LETHARGY [None]
  - MEMORY IMPAIRMENT [None]
  - NIGHTMARE [None]
  - SLEEP DISORDER [None]
  - SUICIDAL IDEATION [None]
